FAERS Safety Report 12432683 (Version 1)
Quarter: 2016Q2

REPORT INFORMATION
  Report Type: Report from Study
  Country: MX (occurrence: MX)
  Receive Date: 20160603
  Receipt Date: 20160603
  Transmission Date: 20160815
  Serious: Yes (Other)
  Sender: FDA-Public Use
  Company Number: MX-ROCHE-1763763

PATIENT
  Age: 79 Year
  Sex: Female

DRUGS (32)
  1. CAPTOPRIL. [Concomitant]
     Active Substance: CAPTOPRIL
     Indication: HYPERTENSION
     Route: 048
     Dates: start: 20080118
  2. OMEPRAZOL [Concomitant]
     Active Substance: OMEPRAZOLE
     Indication: GASTRITIS
     Route: 048
     Dates: start: 20080521
  3. PREDNISONE. [Concomitant]
     Active Substance: PREDNISONE
     Route: 048
     Dates: start: 20150711
  4. LIPITOR [Concomitant]
     Active Substance: ATORVASTATIN CALCIUM
     Indication: HYPERCHOLESTEROLAEMIA
     Route: 048
     Dates: start: 1983
  5. PREDNISONE. [Concomitant]
     Active Substance: PREDNISONE
     Indication: RHEUMATOID ARTHRITIS
     Route: 048
     Dates: start: 20130129, end: 20141127
  6. DIGOXIN. [Concomitant]
     Active Substance: DIGOXIN
     Indication: CARDIAC FAILURE
     Route: 048
     Dates: start: 20080118
  7. FOSAMAX PLUS D [Concomitant]
     Active Substance: ALENDRONATE SODIUM\CHOLECALCIFEROL
     Indication: OSTEOPOROSIS
     Dosage: 1 TABLET
     Route: 048
     Dates: start: 20040609
  8. CALCIUM CARBONATE. [Concomitant]
     Active Substance: CALCIUM CARBONATE
     Indication: OSTEOPOROSIS
     Route: 048
     Dates: start: 20040609
  9. PREDNISONE. [Concomitant]
     Active Substance: PREDNISONE
     Dosage: 7.5 TABLET
     Route: 048
     Dates: start: 20150610, end: 20150710
  10. DOLAC (MEXICO) [Concomitant]
     Indication: HEADACHE
     Route: 060
     Dates: start: 20140505, end: 20140508
  11. ACETAMINOPHEN. [Concomitant]
     Active Substance: ACETAMINOPHEN
     Dosage: 2 TABLET, SINGLE DOSE
     Route: 048
     Dates: start: 20130129, end: 20150416
  12. INVOKANA [Concomitant]
     Active Substance: CANAGLIFLOZIN
     Indication: TYPE 2 DIABETES MELLITUS
     Route: 048
     Dates: start: 20151128
  13. SPIRONOLACTONE. [Concomitant]
     Active Substance: SPIRONOLACTONE
     Indication: CARDIAC FAILURE
     Route: 048
     Dates: start: 20080118
  14. ACETAMINOPHEN. [Concomitant]
     Active Substance: ACETAMINOPHEN
     Indication: RHEUMATOID ARTHRITIS
     Dosage: 2 TABLET, SINGLE DOSE
     Route: 048
     Dates: start: 20151225, end: 20151225
  15. ASPIRIN. [Concomitant]
     Active Substance: ASPIRIN
     Indication: SILENT MYOCARDIAL INFARCTION
     Route: 048
     Dates: start: 20080118
  16. FUROSEMIDE. [Concomitant]
     Active Substance: FUROSEMIDE
     Indication: CARDIAC FAILURE
     Route: 048
     Dates: start: 20080118
  17. CAPTOPRIL. [Concomitant]
     Active Substance: CAPTOPRIL
     Indication: SILENT MYOCARDIAL INFARCTION
  18. METHOTREXATE [Concomitant]
     Active Substance: METHOTREXATE
     Indication: RHEUMATOID ARTHRITIS
     Route: 058
     Dates: start: 20130129
  19. SPIRONOLACTONE. [Concomitant]
     Active Substance: SPIRONOLACTONE
     Dosage: 1 TABLET
     Route: 048
     Dates: start: 20080118
  20. ISOSORBIDE DINITRATE. [Concomitant]
     Active Substance: ISOSORBIDE DINITRATE
     Indication: CARDIAC FAILURE
     Dosage: 1 TABLET
     Route: 048
     Dates: start: 20080118
  21. PREDNISONA [Concomitant]
     Active Substance: PREDNISONE
     Indication: RHEUMATOID ARTHRITIS
     Route: 048
     Dates: start: 20141127, end: 20150610
  22. FOLIC ACID. [Concomitant]
     Active Substance: FOLIC ACID
     Route: 048
     Dates: start: 20130129
  23. TOCILIZUMAB [Suspect]
     Active Substance: TOCILIZUMAB
     Indication: RHEUMATOID ARTHRITIS
     Dosage: LAST DOSE PRIOR TO ADVERSE EVENT (AE): 23/DEC/2015
     Route: 042
     Dates: start: 20130807
  24. NAPROXEN. [Concomitant]
     Active Substance: NAPROXEN
     Indication: RHEUMATOID ARTHRITIS
     Route: 048
     Dates: start: 20130129
  25. LEXAPRO [Concomitant]
     Active Substance: ESCITALOPRAM OXALATE
     Indication: MAJOR DEPRESSION
     Dosage: 1 TABLET
     Route: 048
     Dates: start: 20080118
  26. TRAMADOL. [Concomitant]
     Active Substance: TRAMADOL
     Indication: RHEUMATOID ARTHRITIS
     Route: 048
     Dates: start: 20150610
  27. GLIBENCLAMIDE [Concomitant]
     Active Substance: GLYBURIDE
     Indication: TYPE 2 DIABETES MELLITUS
     Route: 048
     Dates: start: 1983, end: 20151127
  28. VICTOZA [Concomitant]
     Active Substance: LIRAGLUTIDE
     Indication: HYPERGLYCAEMIA
     Route: 058
     Dates: start: 20140125, end: 201510
  29. METOPROLOL. [Concomitant]
     Active Substance: METOPROLOL
     Indication: CARDIAC FAILURE
     Route: 048
     Dates: start: 20080118
  30. METFORMIN [Concomitant]
     Active Substance: METFORMIN HYDROCHLORIDE
     Indication: TYPE 2 DIABETES MELLITUS
     Route: 048
     Dates: start: 1983
  31. TRAMADOL. [Concomitant]
     Active Substance: TRAMADOL
     Route: 048
     Dates: start: 20130129, end: 20130416
  32. CLOPIDOGREL [Concomitant]
     Active Substance: CLOPIDOGREL BISULFATE
     Indication: SILENT MYOCARDIAL INFARCTION
     Route: 048
     Dates: start: 20080118

REACTIONS (1)
  - Silent myocardial infarction [Recovered/Resolved]

NARRATIVE: CASE EVENT DATE: 20160121
